FAERS Safety Report 10361174 (Version 1)
Quarter: 2014Q3

REPORT INFORMATION
  Report Type: Spontaneous
  Country: ES (occurrence: ES)
  Receive Date: 20140804
  Receipt Date: 20140804
  Transmission Date: 20150326
  Serious: Yes (Other)
  Sender: FDA-Public Use
  Company Number: PHHY2014ES093552

PATIENT
  Sex: Female

DRUGS (3)
  1. CERTICAN [Suspect]
     Active Substance: EVEROLIMUS
     Indication: OFF LABEL USE
  2. CERTICAN [Suspect]
     Active Substance: EVEROLIMUS
     Indication: BREAST CANCER METASTATIC
     Dosage: 10 CERTICAN TABLETS OF 1 MG
     Route: 048
     Dates: start: 201404, end: 201406
  3. EXEMESTANO [Concomitant]
     Active Substance: EXEMESTANE
     Dosage: UNK
     Dates: start: 201404, end: 201406

REACTIONS (3)
  - Disease progression [Unknown]
  - Asthenia [Recovered/Resolved]
  - Liver disorder [Unknown]

NARRATIVE: CASE EVENT DATE: 20140618
